FAERS Safety Report 6831934-6 (Version None)
Quarter: 2010Q3

REPORT INFORMATION
  Report Type: 
  Country: None (occurrence: None)
  Receive Date: 20100712
  Receipt Date: 20100629
  Transmission Date: 20110219
  Serious: Yes (Hospitalization)
  Sender: FDA-Public Use
  Company Number: GB-ROCHE-570211

PATIENT
  Sex: Female
  Weight: 101.2 kg

DRUGS (3)
  1. CAPECITABINE [Suspect]
     Indication: COLON CANCER
     Route: 048
     Dates: start: 20080228, end: 20080623
  2. OMEPRAZOLE [Suspect]
     Indication: ANTACID THERAPY
     Route: 048
     Dates: start: 20080201, end: 20080616
  3. METOCLOPRAMIDE [Suspect]
     Indication: ANTIEMETIC SUPPORTIVE CARE
     Route: 048
     Dates: start: 20080201, end: 20080616

REACTIONS (1)
  - NERVOUS SYSTEM DISORDER [None]
